FAERS Safety Report 21734727 (Version 1)
Quarter: 2022Q4

REPORT INFORMATION
  Report Type: Spontaneous
  Country: ES (occurrence: ES)
  Receive Date: 20221215
  Receipt Date: 20221215
  Transmission Date: 20230113
  Serious: Yes (Life-Threatening, Hospitalization, Other)
  Sender: FDA-Public Use
  Company Number: None

PATIENT
  Age: 62 Year
  Sex: Female

DRUGS (22)
  1. ATORVASTATIN [Suspect]
     Active Substance: ATORVASTATIN
     Indication: Product used for unknown indication
     Dosage: FORM STRENGTH : 80 MG, THERAPY START DATE : NASK
     Route: 065
  2. AMIODARONE HYDROCHLORIDE [Suspect]
     Active Substance: AMIODARONE HYDROCHLORIDE
     Indication: Product used for unknown indication
     Dosage: FORM STRENGTH : 200 MG, THERAPY START DATE : NASK
     Route: 065
  3. VENLAFAXINE HYDROCHLORIDE [Suspect]
     Active Substance: VENLAFAXINE HYDROCHLORIDE
     Indication: Depression
     Dosage: FORM STRENGTH : 75 MG, DURATION : 30 DAYS
     Route: 065
     Dates: start: 20221026, end: 20221124
  4. OLANZAPINE [Suspect]
     Active Substance: OLANZAPINE
     Indication: Product used for unknown indication
     Dosage: EFG, FORM STRENGTH : 2.5 MG, THERAPY START DATE : NASK
     Route: 065
     Dates: end: 20221124
  5. FLUCELVAX TETRA [Suspect]
     Active Substance: INFLUENZA VIRUS VACCINE
     Indication: Product used for unknown indication
     Dosage: SUSPENSION FOR INJECTION IN PRE-FILLED SYRINGE, UNIT DOSE : 1 DOSAGE FORMS, FREQUENCY RIME : 1 TOTAL
     Route: 065
     Dates: start: 20221103, end: 20221103
  6. COMIRNATY [Suspect]
     Active Substance: TOZINAMERAN
     Indication: COVID-19 immunisation
     Dosage: 4TH DOSE, OMICRON BA.4-5 (5/5 MICROGRAMS)/CONCENTRATE DOSE FOR INJECTABLE DISPERSION, 10 MULTIDOSE V
     Route: 065
     Dates: start: 20221103, end: 20221103
  7. TERBUTALINE SULFATE [Concomitant]
     Active Substance: TERBUTALINE SULFATE
     Indication: Product used for unknown indication
     Dosage: FORM STRENGTH : 500 MICROGRAMS/INHAULATION,
     Route: 065
  8. ALDACTONE [Concomitant]
     Active Substance: SPIRONOLACTONE
     Indication: Product used for unknown indication
     Dosage: FORM STRENGTH : 25 MG
     Route: 065
  9. FUROSEMIDE [Concomitant]
     Active Substance: FUROSEMIDE
     Indication: Product used for unknown indication
     Dosage: FORM STRENGTH : 40 MG
     Route: 065
  10. ELIQUIS [Concomitant]
     Active Substance: APIXABAN
     Indication: Product used for unknown indication
     Route: 065
  11. JARDIANCE [Concomitant]
     Active Substance: EMPAGLIFLOZIN
     Indication: Product used for unknown indication
     Dosage: FORM STRENGTH : 10 MG
     Route: 065
  12. HIBOR [Concomitant]
     Indication: Product used for unknown indication
     Dosage: 3,500 IU ANTI XA/0.2 ML
     Route: 065
  13. XUMADOL [Concomitant]
     Indication: Product used for unknown indication
     Dosage: EFG, FORM STRENGTH : 1 GRAM
     Route: 065
  14. LORAZEPAM [Concomitant]
     Active Substance: LORAZEPAM
     Indication: Product used for unknown indication
     Dosage: FORM STRENGTH : 5MG
     Route: 065
  15. BISOPROLOL [Concomitant]
     Active Substance: BISOPROLOL
     Indication: Product used for unknown indication
     Dosage: FORM STRENGTH : 2.5MG
     Route: 065
  16. ESOMEPRAZOLE [Concomitant]
     Active Substance: ESOMEPRAZOLE
     Indication: Product used for unknown indication
     Dosage: FORM STRENGTH : 20 MG
     Route: 065
  17. RIVOTRIL [Concomitant]
     Active Substance: CLONAZEPAM
     Indication: Product used for unknown indication
     Dosage: FORM STRENGTH : 2 MG
     Route: 065
  18. COMIRNATY [Concomitant]
     Active Substance: TOZINAMERAN
     Indication: COVID-19 immunisation
     Dosage: 3RD DOSE, 30 MICROGRAMS/DOSE CONCENTRATE FOR INJECTION DISPERSION, 195 VIALS (MULTIDOSE), UNIT DOSE
     Route: 065
     Dates: start: 20211229, end: 20211229
  19. VAXZEVRIA [Concomitant]
     Active Substance: AZD-1222
     Indication: COVID-19 immunisation
     Dosage: 2ND DOSE, 10 MULTIDOSE VIALS (10 DOSES PER VIAL), UNIT DOSE : 1 DOSAGE FORMS, FREQUENCY TIME : 1 TOT
     Route: 065
     Dates: start: 20210730, end: 20210730
  20. VAXZEVRIA [Concomitant]
     Active Substance: AZD-1222
     Dosage: 1ST DOSE, 10 MULTIDOSE VIALS (10 DOSES PER VIAL), UNIT DOSE : 1 DOSAGE FORMS, FREQUENCY TIME : 1 TOT
     Route: 065
     Dates: start: 20210514, end: 20210514
  21. ALPRAZOLAM [Concomitant]
     Active Substance: ALPRAZOLAM
     Indication: Product used for unknown indication
     Dosage: FORM STRENGTH : 1MG
     Route: 065
  22. FERBISOL [Concomitant]
     Indication: Product used for unknown indication
     Dosage: FORM STRENGTH : 100 MG
     Route: 065

REACTIONS (1)
  - Hepatitis fulminant [Recovering/Resolving]

NARRATIVE: CASE EVENT DATE: 20221115
